FAERS Safety Report 7280131-1 (Version None)
Quarter: 2011Q1

REPORT INFORMATION
  Report Type: 
  Country: None (occurrence: None)
  Receive Date: 20110208
  Receipt Date: 20110127
  Transmission Date: 20110831
  Serious: Yes (Other)
  Sender: FDA-Public Use
  Company Number: JP-SANOFI-AVENTIS-2011SA005412

PATIENT
  Age: 57 Year
  Sex: Female

DRUGS (5)
  1. CALCIUM LEVOFOLINATE [Suspect]
     Indication: RECTAL CANCER RECURRENT
     Route: 041
  2. AVASTIN [Suspect]
     Route: 041
     Dates: start: 20110112, end: 20110112
  3. 5-FU [Suspect]
     Indication: RECTAL CANCER RECURRENT
     Route: 041
  4. ELPLAT [Suspect]
     Indication: RECTAL CANCER RECURRENT
     Route: 041
  5. AVASTIN [Suspect]
     Indication: RECTAL CANCER RECURRENT
     Route: 041
     Dates: start: 20101201, end: 20101201

REACTIONS (1)
  - FISTULA [None]
